FAERS Safety Report 10418366 (Version 3)
Quarter: 2015Q3

REPORT INFORMATION
  Report Type: Spontaneous
  Country: BR (occurrence: BR)
  Receive Date: 20140829
  Receipt Date: 20150724
  Transmission Date: 20151125
  Serious: Yes (Hospitalization, Other)
  Sender: FDA-Public Use
  Company Number: BR-SHIRE-BR201405269

PATIENT
  Age: 7 Year
  Sex: Male
  Weight: 31 kg

DRUGS (7)
  1. QUETIAPINE [Concomitant]
     Active Substance: QUETIAPINE
     Indication: ABNORMAL BEHAVIOUR
     Dosage: UNK, UNKNOWN
     Route: 065
  2. RIVOTRIL [Concomitant]
     Active Substance: CLONAZEPAM
     Indication: SLEEP DISORDER
     Dosage: UNK, UNKNOWN
     Route: 065
  3. ELAPRASE [Suspect]
     Active Substance: IDURSULFASE
     Dosage: UNK UNK, UNKNOWN
     Route: 041
     Dates: start: 2014, end: 201501
  4. ELAPRASE [Suspect]
     Active Substance: IDURSULFASE
     Indication: MUCOPOLYSACCHARIDOSIS II
     Dosage: UNK UNK, UNKNOWN
     Route: 041
     Dates: start: 201102, end: 201310
  5. ELAPRASE [Suspect]
     Active Substance: IDURSULFASE
     Dosage: UNK, ONE DOSE (REDUCED)
     Route: 041
     Dates: start: 20140827, end: 20140827
  6. ELAPRASE [Suspect]
     Active Substance: IDURSULFASE
     Dosage: UNK, 1X/WEEK
     Route: 041
     Dates: start: 20120208, end: 20140827
  7. QUETIAPINE [Concomitant]
     Active Substance: QUETIAPINE
     Indication: PSYCHOTIC BEHAVIOUR

REACTIONS (11)
  - Abasia [Unknown]
  - Device related infection [Unknown]
  - Infusion related reaction [Recovered/Resolved]
  - Hyperthermia [Recovering/Resolving]
  - Pneumonia [Unknown]
  - Insomnia [Unknown]
  - Tremor [Recovered/Resolved]
  - Vena cava thrombosis [Unknown]
  - Face oedema [Recovering/Resolving]
  - Pyrexia [Recovered/Resolved]
  - Cyanosis [Recovered/Resolved]

NARRATIVE: CASE EVENT DATE: 201102
